FAERS Safety Report 18243240 (Version 2)
Quarter: 2020Q3

REPORT INFORMATION
  Report Type: Report from Study
  Country: GB (occurrence: GB)
  Receive Date: 20200908
  Receipt Date: 20200909
  Transmission Date: 20201103
  Serious: Yes (Other)
  Sender: FDA-Public Use
  Company Number: GB-JNJFOC-20200842771

PATIENT
  Sex: Female

DRUGS (3)
  1. STELARA [Suspect]
     Active Substance: USTEKINUMAB
     Indication: CROHN^S DISEASE
     Route: 058
     Dates: start: 20180718
  2. DALTEPARIN [Concomitant]
     Active Substance: DALTEPARIN
     Dosage: UNTIL OCTOBER 2020
  3. STELARA [Suspect]
     Active Substance: USTEKINUMAB
     Route: 058
     Dates: start: 202005

REACTIONS (6)
  - Haemorrhagic stroke [Unknown]
  - Crohn^s disease [Unknown]
  - Vitamin B12 deficiency [Unknown]
  - Vitamin D deficiency [Unknown]
  - Adverse drug reaction [Unknown]
  - COVID-19 [Unknown]
